FAERS Safety Report 4869089-X (Version None)
Quarter: 2005Q4

REPORT INFORMATION
  Report Type: 
  Country: None (occurrence: None)
  Receive Date: 20051227
  Receipt Date: 20051213
  Transmission Date: 20060501
  Serious: Yes (Hospitalization)
  Sender: FDA-Public Use
  Company Number: OSCN-NO-0511S-0232

PATIENT
  Age: 14 Year
  Sex: Female

DRUGS (1)
  1. OMNISCAN [Suspect]
     Indication: PITUITARY TUMOUR
     Dosage: 10 ML, SINGLE DOSE, I.V.
     Route: 042
     Dates: start: 20051102, end: 20051102

REACTIONS (3)
  - ANAPHYLACTOID REACTION [None]
  - HEADACHE [None]
  - NAUSEA [None]
